FAERS Safety Report 7499006-8 (Version None)
Quarter: 2011Q2

REPORT INFORMATION
  Report Type: 
  Country: None (occurrence: None)
  Receive Date: 20110524
  Receipt Date: 20110516
  Transmission Date: 20111010
  Serious: No
  Sender: FDA-Public Use
  Company Number: US-B.I. PHARMACEUTICALS,INC./RIDGEFIELD-2011-BP-13209BP

PATIENT
  Age: 74 Year
  Sex: Female

DRUGS (9)
  1. CLARITIN [Concomitant]
  2. DOXEPIN [Concomitant]
  3. SYNTHROID [Concomitant]
  4. METOPROLOL SUCCINATE [Concomitant]
  5. TRICOR [Concomitant]
  6. PRADAXA [Suspect]
     Indication: CEREBROVASCULAR ACCIDENT PROPHYLAXIS
  7. ASA LOW DOSE [Concomitant]
  8. QUINAPRIL [Concomitant]
  9. PRADAXA [Suspect]
     Indication: ATRIAL FIBRILLATION
     Dosage: 300 MG
     Route: 048
     Dates: start: 20110512, end: 20110512

REACTIONS (6)
  - DYSPEPSIA [None]
  - OESOPHAGEAL PAIN [None]
  - ABDOMINAL PAIN UPPER [None]
  - THROAT IRRITATION [None]
  - NAUSEA [None]
  - GLOSSODYNIA [None]
